FAERS Safety Report 9384628 (Version 3)
Quarter: 2013Q3

REPORT INFORMATION
  Report Type: Spontaneous
  Country: PL (occurrence: PL)
  Receive Date: 20130705
  Receipt Date: 20130802
  Transmission Date: 20140515
  Serious: Yes (Life-Threatening, Hospitalization)
  Sender: FDA-Public Use
  Company Number: PL-COVIDIEN/TYCO HEALTHCARE/MALLINCKRODT-T201303599

PATIENT
  Age: 60 Year
  Sex: Female
  Weight: 80 kg

DRUGS (1)
  1. OPTIRAY [Suspect]
     Indication: UROGRAM
     Dosage: 5 ML, SINGLE
     Route: 042
     Dates: start: 20130626, end: 20130626

REACTIONS (3)
  - Tongue oedema [Recovered/Resolved]
  - Dry throat [Recovered/Resolved]
  - Blood pressure increased [Recovered/Resolved]
